FAERS Safety Report 7099615-4 (Version None)
Quarter: 2010Q4

REPORT INFORMATION
  Report Type: 
  Country: None (occurrence: None)
  Receive Date: 20101112
  Receipt Date: 20101105
  Transmission Date: 20110411
  Serious: Yes (Hospitalization)
  Sender: FDA-Public Use
  Company Number: IE-GENZYME-CERZ-1001630

PATIENT
  Sex: Male
  Weight: 95 kg

DRUGS (1)
  1. CEREZYME [Suspect]
     Indication: GAUCHER'S DISEASE
     Dosage: 8 U, Q2W
     Route: 042

REACTIONS (1)
  - INTERVERTEBRAL DISC DISORDER [None]
